FAERS Safety Report 5416509-8 (Version None)
Quarter: 2007Q3

REPORT INFORMATION
  Report Type: 
  Country: None (occurrence: None)
  Receive Date: 20070816
  Receipt Date: 20070809
  Transmission Date: 20080115
  Serious: Yes (Disabling, Congenital Anomaly)
  Sender: FDA-Public Use
  Company Number: GB-ABBOTT-07P-167-0374247-00

PATIENT
  Sex: Male

DRUGS (2)
  1. EPILIM [Suspect]
     Indication: DRUG EXPOSURE DURING PREGNANCY
     Route: 064
  2. CARBAMAZEPINE [Suspect]
     Indication: DRUG EXPOSURE DURING PREGNANCY
     Route: 064

REACTIONS (4)
  - AUTISM [None]
  - DEVELOPMENTAL DELAY [None]
  - INDIFFERENCE [None]
  - SPEECH DISORDER DEVELOPMENTAL [None]
